FAERS Safety Report 9267450 (Version 2)
Quarter: 2013Q2

REPORT INFORMATION
  Report Type: Report from Study
  Country: SE (occurrence: SE)
  Receive Date: 20130502
  Receipt Date: 20130619
  Transmission Date: 20140414
  Serious: Yes (Other)
  Sender: FDA-Public Use
  Company Number: SE-UCBSA-084758

PATIENT
  Age: 61 Year
  Sex: Female

DRUGS (4)
  1. CIMZIA [Suspect]
     Indication: SERONEGATIVE ARTHRITIS
     Dosage: 200,200 MG
     Route: 058
     Dates: start: 20120312, end: 20120815
  2. CIMZIA [Suspect]
     Indication: POLYARTERITIS NODOSA
     Dosage: 200,200 MG
     Route: 058
     Dates: start: 20120312, end: 20120815
  3. PREDNISOLON [Concomitant]
     Dosage: 10, 10 MG
     Dates: start: 20111031
  4. IMUREL [Concomitant]
     Dosage: 50, 50 MG
     Dates: start: 20111031

REACTIONS (1)
  - Alopecia [Not Recovered/Not Resolved]
